FAERS Safety Report 24136027 (Version 2)
Quarter: 2024Q3

REPORT INFORMATION
  Report Type: Report from Study
  Country: FR (occurrence: FR)
  Receive Date: 20240725
  Receipt Date: 20240829
  Transmission Date: 20241016
  Serious: Yes (Other)
  Sender: PFIZER
  Company Number: FR-SEATTLE GENETICS-2021SGN01832

PATIENT
  Age: 49 Year
  Sex: Female
  Weight: 47 kg

DRUGS (5)
  1. TUCATINIB [Suspect]
     Active Substance: TUCATINIB
     Indication: HER2 positive breast cancer
     Dosage: 300 MG, BID
     Route: 048
     Dates: start: 20210205, end: 20210219
  2. TRASTUZUMAB [Suspect]
     Active Substance: TRASTUZUMAB
     Indication: HER2 positive breast cancer
     Dosage: 600 MG, Q3WEEKS
     Route: 058
  3. CAPECITABINE [Suspect]
     Active Substance: CAPECITABINE
     Indication: HER2 positive breast cancer
     Dosage: AT A DOSE 1500 MG/M2 ORALLY BID, DAYS 1-14 ONLY OF A 21-DAY CYCLE
     Route: 048
  4. MEDROL [Concomitant]
     Active Substance: METHYLPREDNISOLONE
     Dosage: 4 MG, QD
     Dates: start: 20190715
  5. MEDROL [Concomitant]
     Active Substance: METHYLPREDNISOLONE
     Dosage: 3.5 MG

REACTIONS (1)
  - Mucosal inflammation [Recovered/Resolved]

NARRATIVE: CASE EVENT DATE: 20210215
